FAERS Safety Report 5053493-3 (Version None)
Quarter: 2006Q3

REPORT INFORMATION
  Report Type: 
  Country: None (occurrence: None)
  Receive Date: 20060712
  Receipt Date: 20060629
  Transmission Date: 20061208
  Serious: Yes (Death)
  Sender: FDA-Public Use
  Company Number: 2006082005

PATIENT
  Age: 52 Year
  Sex: Male

DRUGS (7)
  1. SULPERAZONE [Suspect]
     Indication: PNEUMONIA
     Dosage: INTRAVENOUS
     Route: 042
  2. DIFLUCAN [Concomitant]
  3. RIFAMPICIN [Concomitant]
  4. ISONIAZID [Concomitant]
  5. PYRAZINAMIDE [Concomitant]
  6. AMIKACIN [Concomitant]
  7. COTRIM [Concomitant]

REACTIONS (1)
  - HEPATITIS FULMINANT [None]
